FAERS Safety Report 23367225 (Version 1)
Quarter: 2024Q1

REPORT INFORMATION
  Report Type: Spontaneous
  Country: KR (occurrence: KR)
  Receive Date: 20240104
  Receipt Date: 20240104
  Transmission Date: 20240410
  Serious: Yes (Other)
  Sender: FDA-Public Use
  Company Number: KR-PFIZER INC-202300456193

PATIENT
  Age: 34 Year
  Sex: Female
  Weight: 80 kg

DRUGS (1)
  1. CYTOTEC [Suspect]
     Active Substance: MISOPROSTOL
     Dosage: 4 DF, 1X/DAY
     Dates: start: 20220520

REACTIONS (3)
  - Uterine haemorrhage [Unknown]
  - Abdominal pain lower [Unknown]
  - Chest pain [Unknown]

NARRATIVE: CASE EVENT DATE: 20220520
